FAERS Safety Report 18644341 (Version 1)
Quarter: 2020Q4

REPORT INFORMATION
  Report Type: Spontaneous
  Country: US (occurrence: US)
  Receive Date: 20201221
  Receipt Date: 20201221
  Transmission Date: 20210114
  Serious: Yes (Death, Other)
  Sender: FDA-Public Use
  Company Number: US-PURDUE-USA-2020-0189102

PATIENT
  Age: 43 Year
  Sex: Male

DRUGS (9)
  1. PROPOXYPHENE. [Suspect]
     Active Substance: PROPOXYPHENE
     Indication: PAIN
     Dosage: UNKNOWN
     Route: 065
  2. ALPRAZOLAM. [Suspect]
     Active Substance: ALPRAZOLAM
     Indication: PAIN
     Dosage: UNKNOWN
     Route: 065
  3. ZOLPIDEM [Suspect]
     Active Substance: ZOLPIDEM TARTRATE
     Indication: PAIN
     Dosage: UNKNOWN
     Route: 065
  4. ETHYL ALCOHOL [Suspect]
     Active Substance: ALCOHOL
     Indication: PAIN
     Dosage: UNKNOWN
     Route: 065
  5. PROMETHAZINE [Suspect]
     Active Substance: PROMETHAZINE HYDROCHLORIDE
     Indication: PAIN
     Dosage: UNKNOWN
     Route: 065
  6. OXYCONTIN [Suspect]
     Active Substance: OXYCODONE HYDROCHLORIDE
     Indication: PAIN
     Dosage: UNKNOWN
     Route: 048
  7. HYDROCODONE BITARTRATE AND ACETAMINOPHEN [Suspect]
     Active Substance: ACETAMINOPHEN\HYDROCODONE BITARTRATE
     Indication: PAIN
     Dosage: UNKNOWN
     Route: 048
  8. OXYCODONE/ ACETAMINOPHEN TABLETS [Suspect]
     Active Substance: ACETAMINOPHEN\OXYCODONE HYDROCHLORIDE
     Indication: PAIN
     Dosage: UNKNOWN
     Route: 048
  9. CARISOPRODOL. [Suspect]
     Active Substance: CARISOPRODOL
     Indication: PAIN
     Dosage: UNKNOWN
     Route: 065

REACTIONS (4)
  - Drug dependence [Unknown]
  - Hallucination [Unknown]
  - Toxicity to various agents [Fatal]
  - Somnolence [Unknown]
